FAERS Safety Report 19844565 (Version 2)
Quarter: 2021Q3

REPORT INFORMATION
  Report Type: Other
  Country: CA (occurrence: CA)
  Receive Date: 20210917
  Receipt Date: 20210926
  Transmission Date: 20211014
  Serious: Yes (Other)
  Sender: FDA-Public Use
  Company Number: CA-ROCHE-2908654

PATIENT
  Age: 50 Year
  Sex: Female

DRUGS (24)
  1. CYMBALTA [Suspect]
     Active Substance: DULOXETINE HYDROCHLORIDE
     Indication: FIBROMYALGIA
     Route: 065
     Dates: start: 20200414
  2. XOLAIR [Suspect]
     Active Substance: OMALIZUMAB
     Route: 058
     Dates: start: 20200413
  3. XOLAIR [Suspect]
     Active Substance: OMALIZUMAB
     Route: 058
  4. XOLAIR [Suspect]
     Active Substance: OMALIZUMAB
     Route: 058
     Dates: start: 20200203
  5. XOLAIR [Suspect]
     Active Substance: OMALIZUMAB
     Route: 058
     Dates: start: 20200427
  6. XOLAIR [Suspect]
     Active Substance: OMALIZUMAB
     Route: 065
     Dates: start: 20200707
  7. XOLAIR [Suspect]
     Active Substance: OMALIZUMAB
     Route: 058
  8. XOLAIR [Suspect]
     Active Substance: OMALIZUMAB
     Route: 065
     Dates: start: 20200525
  9. XOLAIR [Suspect]
     Active Substance: OMALIZUMAB
     Route: 065
     Dates: start: 20210525
  10. PREDNISONE. [Concomitant]
     Active Substance: PREDNISONE
     Dosage: 10 MG, QD (7 DAYS)
  11. XOLAIR [Suspect]
     Active Substance: OMALIZUMAB
     Indication: CHRONIC SPONTANEOUS URTICARIA
     Route: 058
     Dates: start: 20160208
  12. XOLAIR [Suspect]
     Active Substance: OMALIZUMAB
     Route: 065
     Dates: start: 20191209
  13. XOLAIR [Suspect]
     Active Substance: OMALIZUMAB
     Route: 065
     Dates: start: 20200106
  14. XOLAIR [Suspect]
     Active Substance: OMALIZUMAB
     Route: 058
  15. XOLAIR [Suspect]
     Active Substance: OMALIZUMAB
     Indication: PSORIASIS
     Route: 058
     Dates: start: 20160209
  16. XOLAIR [Suspect]
     Active Substance: OMALIZUMAB
     Route: 058
     Dates: start: 20200203
  17. XOLAIR [Suspect]
     Active Substance: OMALIZUMAB
     Route: 058
     Dates: start: 20200302
  18. XOLAIR [Suspect]
     Active Substance: OMALIZUMAB
     Route: 065
     Dates: start: 20200511
  19. REACTINE (CANADA) [Concomitant]
     Active Substance: CETIRIZINE HYDROCHLORIDE
     Route: 065
  20. KETOTIFEN [Concomitant]
     Active Substance: KETOTIFEN
  21. XOLAIR [Suspect]
     Active Substance: OMALIZUMAB
     Route: 065
     Dates: start: 20191125
  22. XOLAIR [Suspect]
     Active Substance: OMALIZUMAB
     Route: 058
     Dates: start: 20210118
  23. XOLAIR [Suspect]
     Active Substance: OMALIZUMAB
     Route: 058
  24. SINGULAIR [Concomitant]
     Active Substance: MONTELUKAST SODIUM
     Dosage: 10 MG, BID

REACTIONS (75)
  - Discomfort [Unknown]
  - Dry mouth [Recovered/Resolved]
  - Acne [Not Recovered/Not Resolved]
  - Suffocation feeling [Unknown]
  - Feeling cold [Recovered/Resolved]
  - Hypertonic bladder [Recovered/Resolved]
  - Back pain [Not Recovered/Not Resolved]
  - Paralysis [Unknown]
  - Flushing [Unknown]
  - Gastrooesophageal reflux disease [Unknown]
  - Decreased appetite [Unknown]
  - Urticaria [Unknown]
  - Restless legs syndrome [Unknown]
  - Dry eye [Unknown]
  - Skin plaque [Not Recovered/Not Resolved]
  - Arthropathy [Unknown]
  - Off label use [Unknown]
  - Palpitations [Not Recovered/Not Resolved]
  - Dyspnoea [Recovered/Resolved]
  - Urinary tract infection [Unknown]
  - Burning sensation [Unknown]
  - Muscle spasms [Recovered/Resolved]
  - Burning sensation [Recovered/Resolved]
  - Fatigue [Not Recovered/Not Resolved]
  - Arthralgia [Unknown]
  - Anxiety [Unknown]
  - Tongue pruritus [Unknown]
  - Pain in extremity [Recovered/Resolved]
  - Bladder pain [Recovered/Resolved]
  - Swollen tongue [Unknown]
  - Abdominal pain upper [Unknown]
  - Flatulence [Unknown]
  - Nausea [Recovered/Resolved]
  - Pain [Unknown]
  - Dizziness [Unknown]
  - Feeling abnormal [Recovered/Resolved]
  - Burning sensation [Recovered/Resolved]
  - Muscular weakness [Recovered/Resolved]
  - Visual impairment [Recovered/Resolved]
  - Tongue disorder [Unknown]
  - Abdominal distension [Recovered/Resolved]
  - Hyperhidrosis [Unknown]
  - Dysuria [Recovered/Resolved]
  - Rhinorrhoea [Unknown]
  - Vitreous floaters [Unknown]
  - Headache [Unknown]
  - Vulvovaginal pruritus [Not Recovered/Not Resolved]
  - Mood swings [Unknown]
  - Neck pain [Recovered/Resolved]
  - Vaginal infection [Unknown]
  - Loss of consciousness [Unknown]
  - Diarrhoea [Recovered/Resolved]
  - Abdominal discomfort [Unknown]
  - Eye pruritus [Unknown]
  - Abdominal pain [Not Recovered/Not Resolved]
  - Fibromyalgia [Recovered/Resolved]
  - Formication [Recovered/Resolved]
  - Mobility decreased [Unknown]
  - Swelling [Unknown]
  - Hypoaesthesia [Unknown]
  - Pruritus [Unknown]
  - Paraesthesia [Not Recovered/Not Resolved]
  - Insomnia [Unknown]
  - Peripheral coldness [Unknown]
  - Vaginal disorder [Unknown]
  - Somnolence [Not Recovered/Not Resolved]
  - Loss of libido [Unknown]
  - Tremor [Recovered/Resolved]
  - Inappropriate schedule of product administration [Unknown]
  - Disturbance in attention [Unknown]
  - Paraesthesia [Recovered/Resolved]
  - Stress [Unknown]
  - Throat irritation [Not Recovered/Not Resolved]
  - Anaphylactic reaction [Unknown]
  - Vomiting [Unknown]

NARRATIVE: CASE EVENT DATE: 201911
